FAERS Safety Report 9209692 (Version 2)
Quarter: 2013Q2

REPORT INFORMATION
  Report Type: Spontaneous
  Country: US (occurrence: US)
  Receive Date: 20130404
  Receipt Date: 20130417
  Transmission Date: 20140414
  Serious: No
  Sender: FDA-Public Use
  Company Number: US-BAYER-2013-042548

PATIENT
  Age: 50 Year
  Sex: Female
  Weight: 118 kg

DRUGS (4)
  1. ALEVE GELCAPS [Suspect]
     Indication: ANALGESIC THERAPY
     Dosage: UNK UNK, QD
     Route: 048
  2. ALEVE GELCAPS [Suspect]
     Indication: ANALGESIC THERAPY
     Dosage: 2 DF, UNK
     Route: 048
  3. ALEVE GELCAPS [Suspect]
     Indication: ANALGESIC THERAPY
     Dosage: 3 DF, UNK
     Route: 048
  4. PROTONIX [Concomitant]

REACTIONS (2)
  - Drug effect incomplete [None]
  - Inappropriate schedule of drug administration [None]
